FAERS Safety Report 18106336 (Version 1)
Quarter: 2020Q3

REPORT INFORMATION
  Report Type: Spontaneous
  Country: AT (occurrence: AT)
  Receive Date: 20200803
  Receipt Date: 20200803
  Transmission Date: 20201103
  Serious: Yes (Hospitalization)
  Sender: FDA-Public Use
  Company Number: AT-PUMA BIOTECHNOLOGY, LTD.-2020AT004171

PATIENT
  Sex: Female

DRUGS (2)
  1. NERLYNX [Suspect]
     Active Substance: NERATINIB
     Indication: BREAST CANCER
     Dosage: 240 MG, QD (1/DAY)
     Route: 048
     Dates: start: 202006
  2. LOPERAMID [Suspect]
     Active Substance: LOPERAMIDE
     Indication: PROPHYLAXIS
     Dosage: UNK
     Route: 048
     Dates: start: 202006

REACTIONS (1)
  - Constipation [Unknown]
